FAERS Safety Report 4880918-6 (Version None)
Quarter: 2005Q4

REPORT INFORMATION
  Report Type: 
  Country: None (occurrence: None)
  Receive Date: 20051223
  Receipt Date: 20051025
  Transmission Date: 20060501
  Serious: No
  Sender: FDA-Public Use
  Company Number: 05P-163-0315158-00

PATIENT
  Age: 62 Year
  Sex: Male
  Weight: 96 kg

DRUGS (9)
  1. HUMIRA [Suspect]
     Indication: RHEUMATOID ARTHRITIS
     Dosage: 40 MG, 1 IN 2 WK, SUBCUTANEOUS
     Route: 058
     Dates: start: 20050908
  2. ARTHROTEX [Concomitant]
  3. HYDROXYCHLOROQUINE PHOSPHATE [Concomitant]
  4. FOLIC ACID [Concomitant]
  5. ERGOCALCIFEROL [Concomitant]
  6. CYANOCOBALAMIN [Concomitant]
  7. CETIRIZINE HYDROCHLORIDE [Concomitant]
  8. NASOMAX [Concomitant]
  9. DARVOCET [Concomitant]

REACTIONS (1)
  - DERMATITIS ATOPIC [None]
